FAERS Safety Report 6093979-6 (Version None)
Quarter: 2009Q1

REPORT INFORMATION
  Report Type: 
  Country: None (occurrence: None)
  Receive Date: 20090226
  Receipt Date: 20090220
  Transmission Date: 20090719
  Serious: Yes (Life-Threatening)
  Sender: FDA-Public Use
  Company Number: B0502456A

PATIENT
  Age: 3 Year
  Sex: Female
  Weight: 9.2 kg

DRUGS (3)
  1. FLOLAN [Suspect]
     Indication: PULMONARY HYPERTENSION
     Route: 042
     Dates: start: 20071213, end: 20071218
  2. FLOLAN [Suspect]
     Route: 042
     Dates: start: 20071228, end: 20071229
  3. OXYGEN [Concomitant]

REACTIONS (4)
  - CONDITION AGGRAVATED [None]
  - HYPOXIA [None]
  - INTERSTITIAL LUNG DISEASE [None]
  - PULMONARY OEDEMA [None]
